FAERS Safety Report 9302922 (Version 1)
Quarter: 2013Q2

REPORT INFORMATION
  Report Type: Spontaneous
  Country: US (occurrence: US)
  Receive Date: 20130522
  Receipt Date: 20130522
  Transmission Date: 20140414
  Serious: No
  Sender: FDA-Public Use
  Company Number: US-BAYER-2013-062714

PATIENT
  Age: 72 Year
  Sex: Male
  Weight: 102.4 kg

DRUGS (5)
  1. ALEVE CAPLET [Suspect]
     Dosage: 1 DF, ONCE
     Route: 048
     Dates: start: 201305, end: 20130515
  2. BAYER EXTRA STRENGTH BACK + BODY PAIN [Suspect]
     Indication: ANALGESIC THERAPY
     Dosage: 2 DF, ONCE
     Route: 048
     Dates: start: 201302
  3. LISINOPRIL [Concomitant]
  4. HYDROCHLOROTHIAZIDE [Concomitant]
  5. ASPIRIN [Concomitant]

REACTIONS (2)
  - Drug ineffective [None]
  - Drug ineffective [None]
